FAERS Safety Report 21849059 (Version 1)
Quarter: 2023Q1

REPORT INFORMATION
  Report Type: Spontaneous
  Country: US (occurrence: US)
  Receive Date: 20230111
  Receipt Date: 20230111
  Transmission Date: 20230417
  Serious: No
  Sender: FDA-Public Use
  Company Number: US-BIOGEN-2021BI01064494

PATIENT
  Sex: Male

DRUGS (13)
  1. VUMERITY [Suspect]
     Active Substance: DIROXIMEL FUMARATE
     Indication: Multiple sclerosis
     Route: 050
     Dates: start: 202110
  2. VUMERITY [Suspect]
     Active Substance: DIROXIMEL FUMARATE
     Route: 050
     Dates: start: 20211015
  3. VUMERITY [Suspect]
     Active Substance: DIROXIMEL FUMARATE
     Route: 050
     Dates: start: 20211016, end: 20211022
  4. VUMERITY [Suspect]
     Active Substance: DIROXIMEL FUMARATE
     Route: 050
     Dates: start: 20211023
  5. VUMERITY [Suspect]
     Active Substance: DIROXIMEL FUMARATE
     Route: 050
  6. LISINOPRIL [Concomitant]
     Active Substance: LISINOPRIL
     Route: 050
  7. LIPITOR [Concomitant]
     Active Substance: ATORVASTATIN CALCIUM
     Route: 050
  8. BACLOFEN [Concomitant]
     Active Substance: BACLOFEN
     Route: 050
  9. VESICARE [Concomitant]
     Active Substance: SOLIFENACIN SUCCINATE
     Route: 050
  10. METFORMIN HYDROCHLORIDE [Concomitant]
     Active Substance: METFORMIN HYDROCHLORIDE
     Route: 050
  11. COLACE-T [Concomitant]
     Route: 050
  12. METFORMIN [Concomitant]
     Active Substance: METFORMIN HYDROCHLORIDE
     Indication: Diabetes mellitus
     Route: 050
  13. OXYBUTYNIN CHLORIDE [Concomitant]
     Active Substance: OXYBUTYNIN CHLORIDE
     Route: 050

REACTIONS (5)
  - Product dose omission issue [Unknown]
  - Frustration tolerance decreased [Unknown]
  - Abdominal discomfort [Recovered/Resolved]
  - Hot flush [Recovered/Resolved]
  - Flushing [Recovered/Resolved]
